FAERS Safety Report 21335013 (Version 1)
Quarter: 2022Q3

REPORT INFORMATION
  Report Type: Spontaneous
  Country: US (occurrence: None)
  Receive Date: 20220914
  Receipt Date: 20220914
  Transmission Date: 20221027
  Serious: No
  Sender: FDA-Public Use
  Company Number: None

PATIENT
  Age: 57 Year
  Sex: Female
  Weight: 51.3 kg

DRUGS (3)
  1. PEGASYS [Suspect]
     Active Substance: PEGINTERFERON ALFA-2A
  2. ASPIRIN [Concomitant]
     Active Substance: ASPIRIN
  3. BESREMI [Concomitant]
     Active Substance: ROPEGINTERFERON ALFA-2B-NJFT

REACTIONS (1)
  - COVID-19 [None]
